FAERS Safety Report 22633966 (Version 1)
Quarter: 2023Q2

REPORT INFORMATION
  Report Type: Spontaneous
  Country: JP (occurrence: JP)
  Receive Date: 20230623
  Receipt Date: 20230623
  Transmission Date: 20230721
  Serious: Yes (Other)
  Sender: FDA-Public Use
  Company Number: JP-AMERICAN REGENT INC-2023001489

PATIENT
  Age: 34 Year
  Sex: Female
  Weight: 60 kg

DRUGS (1)
  1. FERINJECT [Suspect]
     Active Substance: FERRIC CARBOXYMALTOSE
     Indication: Iron deficiency anaemia
     Dosage: 500 MILLIGRAM DILUTED IN 100 ML OF 0.9 PERCENT OF SODIUM CHLORIDE (NACL)
     Dates: start: 20230311, end: 20230311

REACTIONS (7)
  - Epidermolysis [Unknown]
  - Induration [Not Recovered/Not Resolved]
  - Pain [Recovering/Resolving]
  - Swelling [Unknown]
  - Feeling hot [Unknown]
  - Infusion site dermatitis [Recovering/Resolving]
  - Erythema [Unknown]

NARRATIVE: CASE EVENT DATE: 20230311
